FAERS Safety Report 15889770 (Version 4)
Quarter: 2019Q1

REPORT INFORMATION
  Report Type: Spontaneous
  Country: JP (occurrence: JP)
  Receive Date: 20190130
  Receipt Date: 20190308
  Transmission Date: 20190417
  Serious: Yes (Life-Threatening, Hospitalization, Other)
  Sender: FDA-Public Use
  Company Number: JP-GLAXOSMITHKLINE-JP2019JPN013806

PATIENT
  Age: 86 Year
  Sex: Male
  Weight: 71 kg

DRUGS (12)
  1. SAMTIREL [Suspect]
     Active Substance: ATOVAQUONE
     Indication: ANTIFUNGAL PROPHYLAXIS
  2. FEBURIC [Concomitant]
     Active Substance: FEBUXOSTAT
     Dosage: 20 MG, 1D
  3. AMITIZA CAPSULE [Concomitant]
     Dosage: 2 DF, 1D
  4. TAMIFLU [Suspect]
     Active Substance: OSELTAMIVIR PHOSPHATE
     Dosage: UNK
     Route: 048
  5. BAYASPIRIN [Concomitant]
     Active Substance: ASPIRIN
     Dosage: 100 MG, 1D
  6. CARERAM [Suspect]
     Active Substance: IGURATIMOD
     Indication: RHEUMATOID ARTHRITIS
     Dosage: 25 MG, 1D
     Route: 048
     Dates: end: 20190123
  7. OSELTAMIVIR PHOSPHATE. [Suspect]
     Active Substance: OSELTAMIVIR PHOSPHATE
     Dosage: 1 DF, 1D
     Route: 048
     Dates: start: 20190115, end: 20190118
  8. CARVEDILOL. [Concomitant]
     Active Substance: CARVEDILOL
     Dosage: 1.25 MG, 1D
  9. SAMTIREL [Suspect]
     Active Substance: ATOVAQUONE
     Indication: PNEUMOCYSTIS JIROVECII PNEUMONIA
     Dosage: 2 PACKS, 1D
     Route: 048
     Dates: start: 20181128, end: 20190123
  10. PREDONINE [Concomitant]
     Active Substance: PREDNISOLONE
     Dosage: UNK MG, UNK
  11. OSELTAMIVIR PHOSPHATE. [Suspect]
     Active Substance: OSELTAMIVIR PHOSPHATE
     Indication: ANTIVIRAL PROPHYLAXIS
     Dosage: 1 DF, 1D
     Route: 048
     Dates: start: 20190108, end: 20190111
  12. LANSOPRAZOLE. [Concomitant]
     Active Substance: LANSOPRAZOLE
     Dosage: 15 MG, 1D

REACTIONS (6)
  - Pseudomonal bacteraemia [Recovered/Resolved]
  - Agranulocytosis [Recovered/Resolved]
  - Diverticulitis [Recovered/Resolved]
  - Neutropenia [Recovered/Resolved]
  - White blood cell count decreased [Recovered/Resolved]
  - Pyrexia [Recovered/Resolved]

NARRATIVE: CASE EVENT DATE: 20190118
